FAERS Safety Report 25190868 (Version 1)
Quarter: 2025Q2

REPORT INFORMATION
  Report Type: Spontaneous
  Country: US (occurrence: US)
  Receive Date: 20250411
  Receipt Date: 20250411
  Transmission Date: 20250716
  Serious: Yes (Hospitalization, Other)
  Sender: ELI LILLY AND CO
  Company Number: US-ELI_LILLY_AND_COMPANY-US202503026176

PATIENT
  Age: 23 Year
  Sex: Female

DRUGS (6)
  1. TIRZEPATIDE [Suspect]
     Active Substance: TIRZEPATIDE
     Indication: Type 2 diabetes mellitus
     Dosage: 2.5 MG, WEEKLY (1/W)
     Route: 065
     Dates: start: 202302
  2. TIRZEPATIDE [Suspect]
     Active Substance: TIRZEPATIDE
     Indication: Obesity
     Dosage: 5 MG, WEEKLY (1/W)
     Route: 065
     Dates: start: 202305
  3. TIRZEPATIDE [Suspect]
     Active Substance: TIRZEPATIDE
     Dosage: 7.5 MG, WEEKLY (1/W)
     Route: 065
     Dates: start: 202305
  4. TIRZEPATIDE [Suspect]
     Active Substance: TIRZEPATIDE
     Dosage: 10 MG, WEEKLY (1/W)
     Route: 065
     Dates: start: 202307
  5. TIRZEPATIDE [Suspect]
     Active Substance: TIRZEPATIDE
     Dosage: 15 MG, WEEKLY (1/W)
     Route: 065
     Dates: start: 202308
  6. TIRZEPATIDE [Suspect]
     Active Substance: TIRZEPATIDE
     Dosage: 7.5 MG, WEEKLY (1/W)
     Route: 065
     Dates: start: 202401

REACTIONS (15)
  - Anorexia nervosa [Unknown]
  - Syncope [Unknown]
  - Bradycardia [Unknown]
  - Obsessive-compulsive disorder [Unknown]
  - Obsessive-compulsive personality disorder [Unknown]
  - Palpitations [Unknown]
  - Dry skin [Unknown]
  - Temperature intolerance [Unknown]
  - Hyperbilirubinaemia [Unknown]
  - Alopecia [Unknown]
  - Dizziness [Unknown]
  - Hypotension [Unknown]
  - Nausea [Unknown]
  - Vomiting [Unknown]
  - Diarrhoea [Unknown]
